FAERS Safety Report 7814392-4 (Version None)
Quarter: 2011Q4

REPORT INFORMATION
  Report Type: 
  Country: None (occurrence: None)
  Receive Date: 20111014
  Receipt Date: 20111003
  Transmission Date: 20120403
  Serious: Yes (Hospitalization, Other)
  Sender: FDA-Public Use
  Company Number: PHHY2011BR88486

PATIENT
  Sex: Female

DRUGS (2)
  1. TRILEPTAL [Suspect]
     Dosage: 300 MG, UNK
  2. DIOVAN [Suspect]
     Dosage: 160 MG, UNK

REACTIONS (4)
  - THROMBOSIS [None]
  - CONFUSIONAL STATE [None]
  - CEREBROVASCULAR ACCIDENT [None]
  - MEMORY IMPAIRMENT [None]
